FAERS Safety Report 9318572 (Version 5)
Quarter: 2014Q1

REPORT INFORMATION
  Report Type: Report from Study
  Country: CN (occurrence: CN)
  Receive Date: 20130530
  Receipt Date: 20140224
  Transmission Date: 20141002
  Serious: Yes (Death, Hospitalization, Other)
  Sender: FDA-Public Use
  Company Number: CN-ELI_LILLY_AND_COMPANY-CN201304002294

PATIENT
  Age: 77 Year
  Sex: Female

DRUGS (1)
  1. TERIPARATIDE [Suspect]
     Indication: OSTEOPOROSIS
     Dosage: 20 UG, QD
     Route: 058
     Dates: start: 20130328, end: 20130425

REACTIONS (5)
  - Cardiac failure [Fatal]
  - Abdominal pain upper [Unknown]
  - Pollakiuria [Unknown]
  - Dizziness [Recovering/Resolving]
  - Nausea [Recovering/Resolving]
